FAERS Safety Report 12975030 (Version 1)
Quarter: 2016Q4

REPORT INFORMATION
  Report Type: Report from Study
  Country: DE (occurrence: DE)
  Receive Date: 20161125
  Receipt Date: 20161125
  Transmission Date: 20170207
  Serious: Yes (Hospitalization)
  Sender: FDA-Public Use
  Company Number: DE-ROCHE-1813352

PATIENT
  Sex: Female

DRUGS (11)
  1. CLEXANE [Concomitant]
     Active Substance: ENOXAPARIN SODIUM
  2. EUTHYROX [Concomitant]
     Active Substance: LEVOTHYROXINE SODIUM
  3. ASPIRIN. [Concomitant]
     Active Substance: ASPIRIN
  4. AMLODIPIN [Concomitant]
     Active Substance: AMLODIPINE BESYLATE
  5. NOVAMINE [Concomitant]
     Active Substance: ALANINE\ARGININE\ASPARTIC ACID\GLUTAMIC ACID\GLYCINE\HISTIDINE\ISOLEUCINE\LEUCINE\LYSINE ACETATE\METHIONINE\PHENYLALANINE\PROLINE\SERINE\THREONINE\TRYPTOPHAN\TYROSINE\VALINE
  6. PANTOZOL [Concomitant]
     Active Substance: PANTOPRAZOLE SODIUM
  7. FLUDROCORTISON [Concomitant]
     Active Substance: FLUDROCORTISONE
  8. HYDROCORTISON [Concomitant]
     Active Substance: HYDROCORTISONE
  9. RAMIPRIL HCT [Concomitant]
     Active Substance: HYDROCHLOROTHIAZIDE\RAMIPRIL
  10. TOCILIZUMAB [Suspect]
     Active Substance: TOCILIZUMAB
     Indication: RHEUMATOID ARTHRITIS
     Route: 042
     Dates: end: 201603
  11. BISOPROLOL [Concomitant]
     Active Substance: BISOPROLOL

REACTIONS (3)
  - Adenocarcinoma of colon [Recovered/Resolved]
  - Abscess [Unknown]
  - Large intestine perforation [Unknown]

NARRATIVE: CASE EVENT DATE: 201604
